FAERS Safety Report 22939876 (Version 3)
Quarter: 2023Q4

REPORT INFORMATION
  Report Type: Report from Study
  Country: US (occurrence: US)
  Receive Date: 20230913
  Receipt Date: 20231219
  Transmission Date: 20240110
  Serious: Yes (Other)
  Sender: FDA-Public Use
  Company Number: US-ABBVIE-5331137

PATIENT
  Sex: Male

DRUGS (4)
  1. VENCLEXTA [Suspect]
     Active Substance: VENETOCLAX
     Indication: Chronic lymphocytic leukaemia
     Dosage: LAST ADMIN DATE: 2023
     Route: 048
     Dates: start: 20230525
  2. VENCLEXTA [Suspect]
     Active Substance: VENETOCLAX
     Indication: Chronic lymphocytic leukaemia
     Dosage: FIRST AND LAST ADMIN DATE: 2023
     Route: 048
  3. VENCLEXTA [Suspect]
     Active Substance: VENETOCLAX
     Indication: Chronic lymphocytic leukaemia
     Dosage: FIRST ADMIN DATE WAS: 2023
     Route: 048
  4. VENCLEXTA [Suspect]
     Active Substance: VENETOCLAX
     Indication: Chronic lymphocytic leukaemia
     Dosage: FIRST ADMIN DATE: MAY 2023 LAST ADMIN DATE: 2023
     Route: 048

REACTIONS (15)
  - Ankle fracture [Unknown]
  - Fall [Unknown]
  - Blood bilirubin increased [Unknown]
  - Musculoskeletal pain [Not Recovered/Not Resolved]
  - Pain [Unknown]
  - Neutropenia [Unknown]
  - Blood immunoglobulin G decreased [Unknown]
  - Myalgia [Unknown]
  - Lymphopenia [Unknown]
  - Muscular weakness [Recovering/Resolving]
  - Muscular weakness [Unknown]
  - Joint instability [Unknown]
  - Sinusitis [Unknown]
  - COVID-19 [Unknown]
  - Bone pain [Unknown]

NARRATIVE: CASE EVENT DATE: 20230101
